FAERS Safety Report 10060116 (Version 2)
Quarter: 2014Q2

REPORT INFORMATION
  Report Type: Spontaneous
  Country: US (occurrence: US)
  Receive Date: 20140404
  Receipt Date: 20140404
  Transmission Date: 20141212
  Serious: No
  Sender: FDA-Public Use
  Company Number: US-009507513-1403USA005931

PATIENT
  Sex: Female
  Weight: 51.7 kg

DRUGS (2)
  1. OXYTROL FOR WOMEN [Suspect]
     Indication: POLLAKIURIA
     Dosage: UNK, UNKNOWN
     Route: 062
     Dates: start: 201310, end: 201403
  2. OXYTROL FOR WOMEN [Suspect]
     Indication: BLADDER DISORDER

REACTIONS (2)
  - Drug effect decreased [Unknown]
  - Product quality issue [Unknown]
